FAERS Safety Report 16143886 (Version 1)
Quarter: 2019Q2

REPORT INFORMATION
  Report Type: Other
  Country: FR (occurrence: FR)
  Receive Date: 20190401
  Receipt Date: 20190401
  Transmission Date: 20190711
  Serious: Yes (Hospitalization, Other)
  Sender: FDA-Public Use
  Company Number: FR-GE HEALTHCARE LIFE SCIENCES-2019CSU001688

PATIENT

DRUGS (18)
  1. IOMERON [Suspect]
     Active Substance: IOMEPROL
     Indication: MYOCARDIAL ISCHAEMIA
     Dosage: UNK UNK, SINGLE
     Route: 042
     Dates: start: 2017, end: 2017
  2. SIMVASTATIN. [Concomitant]
     Active Substance: SIMVASTATIN
  3. OMNIPAQUE [Suspect]
     Active Substance: IOHEXOL
     Indication: SKIN TEST
     Dosage: UNK UNK, SINGLE
     Route: 003
     Dates: start: 2018, end: 2018
  4. IOBITRIDOL [Suspect]
     Active Substance: IOBITRIDOL
     Indication: SKIN TEST
     Dosage: UNK UNK, SINGLE
     Route: 003
     Dates: start: 2018, end: 2018
  5. IOPROMIDE. [Suspect]
     Active Substance: IOPROMIDE
     Indication: CORONARY ARTERIAL STENT INSERTION
     Dosage: UNK UNK, SINGLE
     Route: 042
  6. IOPROMIDE. [Suspect]
     Active Substance: IOPROMIDE
     Indication: VALVULOPLASTY CARDIAC
  7. AMIDOTRIZOATE DE SODIUM [Concomitant]
     Indication: SKIN TEST
     Dosage: UNK UNK, SINGLE
     Route: 003
     Dates: start: 2018, end: 2018
  8. FUROSEMIDE. [Concomitant]
     Active Substance: FUROSEMIDE
  9. IOMERON [Suspect]
     Active Substance: IOMEPROL
     Indication: AORTIC STENOSIS
     Dosage: UNK UNK, SINGLE
     Route: 042
     Dates: start: 2017, end: 2017
  10. IOVERSOL [Suspect]
     Active Substance: IOVERSOL
     Indication: SKIN TEST
     Dosage: UNK UNK, SINGLE
     Route: 003
     Dates: start: 2018, end: 2018
  11. IOXITALAMATE MEGLUMINE [Suspect]
     Active Substance: MEGLUMINE IOXITHALAMATE
     Indication: SKIN TEST
     Dosage: UNK UNK, SINGLE
     Route: 003
     Dates: start: 2018, end: 2018
  12. PREDNISONE. [Concomitant]
     Active Substance: PREDNISONE
     Indication: PREMEDICATION
     Dosage: 1 MG/KG, UNK
     Route: 048
  13. VISIPAQUE [Suspect]
     Active Substance: IODIXANOL
     Indication: SKIN TEST
     Dosage: UNK UNK, SINGLE
     Route: 003
     Dates: start: 2018, end: 2018
  14. IOMERON [Suspect]
     Active Substance: IOMEPROL
     Indication: COMPUTERISED TOMOGRAM
     Dosage: UNK UNK, SINGLE
     Route: 042
     Dates: start: 2017, end: 2017
  15. IOPAMIDOL [Suspect]
     Active Substance: IOPAMIDOL
     Indication: SKIN TEST
     Dosage: UNK UNK, SINGLE
     Route: 003
     Dates: start: 2018, end: 2018
  16. PARACETAMOL [Concomitant]
     Active Substance: ACETAMINOPHEN
  17. IOMEPROL [Suspect]
     Active Substance: IOMEPROL
     Indication: SKIN TEST
     Dosage: UNK, SINGLE
     Route: 003
     Dates: start: 2018, end: 2018
  18. IOPROMIDE. [Suspect]
     Active Substance: IOPROMIDE
     Indication: SKIN TEST
     Dosage: UNK, SINGLE
     Route: 003
     Dates: start: 2018, end: 2018

REACTIONS (4)
  - Rash erythematous [Unknown]
  - Acute generalised exanthematous pustulosis [Recovered/Resolved]
  - Contrast media allergy [Unknown]
  - Off label use [Recovered/Resolved]

NARRATIVE: CASE EVENT DATE: 20171130
